FAERS Safety Report 11314485 (Version 1)
Quarter: 2015Q3

REPORT INFORMATION
  Report Type: Spontaneous
  Country: US (occurrence: US)
  Receive Date: 20150727
  Receipt Date: 20150727
  Transmission Date: 20151125
  Serious: Yes (Death)
  Sender: FDA-Public Use
  Company Number: US-BAXTER-2015BAX040970

PATIENT
  Age: 25 Week
  Sex: Male
  Weight: .71 kg

DRUGS (13)
  1. CEFAZOLIN INJECTION [Suspect]
     Active Substance: CEFAZOLIN
     Indication: FOETAL EXPOSURE TIMING UNSPECIFIED
     Route: 064
  2. VANCOMYCIN INJECTION, USP [Suspect]
     Active Substance: VANCOMYCIN
     Indication: FOETAL EXPOSURE TIMING UNSPECIFIED
     Route: 064
  3. METRONIDAZOLE INJECTION, USP [Suspect]
     Active Substance: METRONIDAZOLE
     Indication: FOETAL EXPOSURE TIMING UNSPECIFIED
     Route: 064
  4. MAGNESIUM SULFATE. [Suspect]
     Active Substance: MAGNESIUM SULFATE
     Indication: FOETAL EXPOSURE TIMING UNSPECIFIED
     Route: 064
  5. IVERMECTIN. [Suspect]
     Active Substance: IVERMECTIN
     Indication: FOETAL EXPOSURE TIMING UNSPECIFIED
     Route: 064
  6. OSELTAMIVIR [Suspect]
     Active Substance: OSELTAMIVIR
     Indication: FOETAL EXPOSURE TIMING UNSPECIFIED
     Route: 064
  7. CEFTRIAXONE AND DEXTROSE [Suspect]
     Active Substance: CEFTRIAXONE SODIUM
     Indication: FOETAL EXPOSURE TIMING UNSPECIFIED
     Route: 064
  8. ACETAMINOPHEN. [Suspect]
     Active Substance: ACETAMINOPHEN
     Indication: FOETAL EXPOSURE TIMING UNSPECIFIED
     Route: 064
  9. AZITHROMYCIN [Suspect]
     Active Substance: AZITHROMYCIN ANHYDROUS
     Indication: FOETAL EXPOSURE TIMING UNSPECIFIED
     Route: 064
  10. CEFEPIME [Suspect]
     Active Substance: CEFEPIME HYDROCHLORIDE
     Indication: FOETAL EXPOSURE TIMING UNSPECIFIED
     Route: 064
  11. BETAMETHASONE. [Suspect]
     Active Substance: BETAMETHASONE
     Indication: FOETAL EXPOSURE TIMING UNSPECIFIED
     Dosage: TWO DOSES 24 HOURS APART
     Route: 064
  12. ALBENDAZOLE [Suspect]
     Active Substance: ALBENDAZOLE
     Indication: FOETAL EXPOSURE TIMING UNSPECIFIED
     Route: 064
  13. MORPHINE [Suspect]
     Active Substance: MORPHINE
     Indication: FOETAL EXPOSURE TIMING UNSPECIFIED
     Route: 064

REACTIONS (1)
  - Stillbirth [Fatal]
